FAERS Safety Report 9405645 (Version 1)
Quarter: 2013Q3

REPORT INFORMATION
  Report Type: Spontaneous
  Country: FR (occurrence: FR)
  Receive Date: 20130717
  Receipt Date: 20130717
  Transmission Date: 20140515
  Serious: Yes (Life-Threatening, Hospitalization, Disabling, Other)
  Sender: FDA-Public Use
  Company Number: FR-009507513-1211FRA002155

PATIENT
  Age: 59 Year
  Sex: Female
  Weight: 53 kg

DRUGS (7)
  1. TEMODAL [Suspect]
     Indication: ASTROCYTOMA
     Dosage: 110 MG, QD
     Route: 048
     Dates: start: 20120928, end: 20121019
  2. THERAPEUTIC RADIOPHARMACEUTICAL (UNSPECIFIED) [Concomitant]
     Indication: ASTROCYTOMA
     Dosage: UNK
     Dates: start: 20120928, end: 20121128
  3. BACTRIM FORTE [Concomitant]
     Indication: PRODUCT USED FOR UNKNOWN INDICATION
     Dosage: 3 DF, QW
     Dates: start: 20120928, end: 20121024
  4. KEPPRA [Concomitant]
     Indication: PRODUCT USED FOR UNKNOWN INDICATION
     Dosage: 500 MG, QAM
     Dates: start: 20120830, end: 20121231
  5. KEPPRA [Concomitant]
     Dosage: 250 MG, QPM
     Dates: start: 20120830, end: 20121231
  6. ZOPHREN (ONDANSETRON HYDROCHLORIDE) [Concomitant]
     Indication: NAUSEA
     Dosage: 8 MG, QD
     Dates: start: 20120928, end: 20121006
  7. PRIMPERAN [Concomitant]
     Indication: NAUSEA
     Dosage: 20 MG, UNK
     Dates: start: 20121007, end: 20121018

REACTIONS (4)
  - Toxicity to various agents [Recovering/Resolving]
  - Thrombocytopenia [Recovering/Resolving]
  - Leukopenia [Recovering/Resolving]
  - Anaemia [Recovering/Resolving]
